FAERS Safety Report 7574142-6 (Version None)
Quarter: 2011Q2

REPORT INFORMATION
  Report Type: 
  Country: None (occurrence: None)
  Receive Date: 20110627
  Receipt Date: 20110615
  Transmission Date: 20111010
  Serious: Yes (Hospitalization, Other)
  Sender: FDA-Public Use
  Company Number: PHEH2008US07395

PATIENT
  Sex: Male

DRUGS (65)
  1. MAGNESIUM OXIDE [Concomitant]
  2. ZOFRAN [Concomitant]
  3. PROPAFENONE HCL [Concomitant]
  4. ZITHROMAX [Concomitant]
  5. LIBRAX [Concomitant]
     Dosage: THRICE A DAY
     Route: 048
  6. VICODIN [Concomitant]
  7. CENTRUM SILVER [Concomitant]
  8. ZOMETA [Suspect]
     Dosage: UNK, UNK
     Route: 042
     Dates: end: 20060101
  9. RADIATION THERAPY [Concomitant]
  10. ASPIRIN [Concomitant]
  11. FOSAMAX [Concomitant]
     Dosage: UNK
  12. AVODART [Concomitant]
     Dosage: UNK
  13. PROMETHAZINE [Concomitant]
  14. BENZONATATE [Concomitant]
  15. DEMEROL [Concomitant]
  16. BENEFIBER [Concomitant]
     Indication: CONSTIPATION
  17. LOTREL [Concomitant]
  18. MORPHINE [Concomitant]
  19. OXYCONTIN [Concomitant]
     Dosage: UNK
  20. COLACE [Concomitant]
     Dosage: UNK
  21. FLOMAX [Concomitant]
     Dosage: UNK
  22. HYDROCODONE BITARTRATE AND ACETAMINOPHEN [Concomitant]
  23. ADVAIR DISKUS 100/50 [Concomitant]
  24. MIRALAX [Concomitant]
  25. AMOXICILLIN [Concomitant]
  26. ZANTAC [Concomitant]
  27. TYLENOL-500 [Concomitant]
  28. KETOROLAC TROMETHAMINE [Concomitant]
  29. VISTARIL [Concomitant]
  30. ALPRAZOLAM [Concomitant]
  31. ALBUTEROL SULFATE AUTOHALER [Concomitant]
  32. FLUCONAZOLE [Concomitant]
  33. MAALOX                                  /NET/ [Concomitant]
  34. OXYCODONE HCL [Concomitant]
  35. ZOLOFT [Concomitant]
  36. TOPROL-XL [Concomitant]
  37. IBUPROFEN [Concomitant]
  38. PRILOSEC [Concomitant]
  39. AMBIEN [Concomitant]
  40. PROPOXYPHENE NAPSYLATE W/ ACETAMINOPHEN [Concomitant]
  41. MEGESTROL ACETATE [Concomitant]
  42. SANCTURA [Concomitant]
  43. PREDNISONE [Concomitant]
  44. LEVSIN [Concomitant]
  45. AMPICILLIN SODIUM [Concomitant]
  46. PERCOCET [Concomitant]
  47. HYALURONATE SODIUM [Concomitant]
     Dosage: UNK
     Dates: start: 20090617
  48. BIAXIN XL [Concomitant]
  49. GLYCOLAX [Concomitant]
  50. UROXATRAL [Concomitant]
  51. TEQUIN [Concomitant]
  52. HYDROMORPHONE HCL [Concomitant]
  53. MULTIVITAMIN ^LAPPE^ [Concomitant]
  54. PHENERGAN [Concomitant]
  55. XANAX [Concomitant]
  56. SINGULAIR [Concomitant]
  57. CHLORHEXIDINE GLUCONATE [Concomitant]
  58. FENTANYL [Concomitant]
  59. THALOMID [Concomitant]
  60. DEXAMETHASONE [Concomitant]
  61. CEPHALEXIN [Concomitant]
  62. CLOTRIMAZOLE [Concomitant]
  63. VERSED [Concomitant]
     Dosage: 3 MG
     Route: 042
  64. ASPIRIN [Concomitant]
  65. ACIPHEX [Concomitant]

REACTIONS (100)
  - FEBRILE NEUTROPENIA [None]
  - EYE PAIN [None]
  - POSTERIOR CAPSULE OPACIFICATION [None]
  - INJURY [None]
  - PERIODONTITIS [None]
  - COMPRESSION FRACTURE [None]
  - DENTAL CARIES [None]
  - OESOPHAGEAL OBSTRUCTION [None]
  - CHOLELITHIASIS [None]
  - POLLAKIURIA [None]
  - FLANK PAIN [None]
  - CONTUSION [None]
  - ARTHRALGIA [None]
  - GAIT DISTURBANCE [None]
  - PARAESTHESIA [None]
  - CARDIOMEGALY [None]
  - SPINAL COMPRESSION FRACTURE [None]
  - CATARACT [None]
  - BLEPHARITIS [None]
  - DIZZINESS [None]
  - PYURIA [None]
  - VISUAL IMPAIRMENT [None]
  - IMPAIRED WORK ABILITY [None]
  - MASTICATION DISORDER [None]
  - PAIN [None]
  - DEPRESSION [None]
  - MICTURITION URGENCY [None]
  - NOCTURIA [None]
  - URINARY INCONTINENCE [None]
  - NAUSEA [None]
  - DIARRHOEA [None]
  - FATIGUE [None]
  - PHARYNGITIS [None]
  - VISION BLURRED [None]
  - TOOTH LOSS [None]
  - BODY TEMPERATURE INCREASED [None]
  - VOMITING [None]
  - HEARING IMPAIRED [None]
  - INTERVERTEBRAL DISC PROTRUSION [None]
  - CATARACT NUCLEAR [None]
  - DEHYDRATION [None]
  - DYSURIA [None]
  - FALL [None]
  - IMPAIRED HEALING [None]
  - PULPITIS DENTAL [None]
  - DIVERTICULUM [None]
  - ARTHROPATHY [None]
  - LIPOMA [None]
  - DYSPHAGIA [None]
  - STRESS [None]
  - URINARY TRACT INFECTION [None]
  - ASTHENIA [None]
  - BALANCE DISORDER [None]
  - VERTEBRAL FORAMINAL STENOSIS [None]
  - VITREOUS DEGENERATION [None]
  - SUBRETINAL FIBROSIS [None]
  - SICK SINUS SYNDROME [None]
  - PAIN IN JAW [None]
  - ANXIETY [None]
  - ABDOMINAL DISTENSION [None]
  - PNEUMONIA [None]
  - HAEMATURIA [None]
  - PROSTATIC OBSTRUCTION [None]
  - DEVICE BREAKAGE [None]
  - CONSTIPATION [None]
  - WEIGHT INCREASED [None]
  - AGE-RELATED MACULAR DEGENERATION [None]
  - CHOLECYSTITIS INFECTIVE [None]
  - HIATUS HERNIA [None]
  - RECTAL HAEMORRHAGE [None]
  - WEIGHT DECREASED [None]
  - PROSTATIC SPECIFIC ANTIGEN INCREASED [None]
  - PEPTIC ULCER [None]
  - PLEURAL EFFUSION [None]
  - MACULAR SCAR [None]
  - CONJUNCTIVAL ABRASION [None]
  - PROSTATOMEGALY [None]
  - ATRIAL FIBRILLATION [None]
  - OSTEONECROSIS OF JAW [None]
  - ACTIVITIES OF DAILY LIVING IMPAIRED [None]
  - INFECTION [None]
  - DYSGEUSIA [None]
  - ANHEDONIA [None]
  - BACK PAIN [None]
  - OSTEOMYELITIS [None]
  - URINARY HESITATION [None]
  - HEADACHE [None]
  - TINNITUS [None]
  - PLASMACYTOMA [None]
  - GINGIVAL PAIN [None]
  - BLINDNESS [None]
  - RENAL DISORDER [None]
  - TOOTHACHE [None]
  - INGUINAL HERNIA [None]
  - IRRITABLE BOWEL SYNDROME [None]
  - ACQUIRED OESOPHAGEAL WEB [None]
  - HICCUPS [None]
  - CYSTITIS [None]
  - PLEURAL FIBROSIS [None]
  - BLOOD CHOLESTEROL INCREASED [None]
